FAERS Safety Report 13638155 (Version 1)
Quarter: 2017Q2

REPORT INFORMATION
  Report Type: Spontaneous
  Country: DE (occurrence: DE)
  Receive Date: 20170609
  Receipt Date: 20170609
  Transmission Date: 20170830
  Serious: Yes (Hospitalization)
  Sender: FDA-Public Use
  Company Number: DE-JNJFOC-20170606303

PATIENT
  Age: 75 Year
  Sex: Male

DRUGS (10)
  1. FUROSEMIDE. [Concomitant]
     Active Substance: FUROSEMIDE
     Route: 065
  2. SPIRONOLACTON [Concomitant]
     Active Substance: SPIRONOLACTONE
     Route: 065
  3. DIGIMERCK [Concomitant]
     Active Substance: DIGITOXIN
     Route: 065
  4. XARELTO [Suspect]
     Active Substance: RIVAROXABAN
     Indication: ATRIAL FIBRILLATION
     Route: 048
     Dates: start: 201405
  5. METFORMIN [Concomitant]
     Active Substance: METFORMIN HYDROCHLORIDE
     Route: 065
  6. CLOPIDOGREL [Suspect]
     Active Substance: CLOPIDOGREL BISULFATE
     Indication: CORONARY ARTERIAL STENT INSERTION
     Route: 048
     Dates: start: 201612
  7. TELMISARTAN. [Concomitant]
     Active Substance: TELMISARTAN
     Route: 065
  8. METOHEXAL SUCC [Concomitant]
     Active Substance: METOPROLOL SUCCINATE
     Route: 065
  9. L-THYROXIN HENNING [Concomitant]
     Active Substance: LEVOTHYROXINE SODIUM
     Route: 065
  10. SIMVASTATIN. [Concomitant]
     Active Substance: SIMVASTATIN
     Route: 065

REACTIONS (5)
  - Peripheral swelling [Not Recovered/Not Resolved]
  - Muscle haemorrhage [Not Recovered/Not Resolved]
  - Skin ulcer [Not Recovered/Not Resolved]
  - Seroma [Not Recovered/Not Resolved]
  - Compartment syndrome [Not Recovered/Not Resolved]

NARRATIVE: CASE EVENT DATE: 201704
